FAERS Safety Report 23121610 (Version 1)
Quarter: 2023Q4

REPORT INFORMATION
  Report Type: Spontaneous
  Country: CN (occurrence: CN)
  Receive Date: 20231029
  Receipt Date: 20231029
  Transmission Date: 20240109
  Serious: Yes (Death, Hospitalization)
  Sender: FDA-Public Use
  Company Number: CN-STRIDES ARCOLAB LIMITED-2023SP015884

PATIENT
  Age: 1 Decade
  Sex: Female
  Weight: 12 kg

DRUGS (14)
  1. OSELTAMIVIR [Suspect]
     Active Substance: OSELTAMIVIR
     Indication: Antiviral treatment
     Dosage: 30 MILLIGRAM, BID
  2. OSELTAMIVIR [Suspect]
     Active Substance: OSELTAMIVIR
     Indication: Influenza
  3. DIAZEPAM [Suspect]
     Active Substance: DIAZEPAM
     Indication: Seizure
     Dosage: UNK
     Route: 065
  4. PHENOBARBITAL [Suspect]
     Active Substance: PHENOBARBITAL
     Indication: Seizure
     Dosage: UNK
     Route: 065
  5. CEFTRIAXONE [Suspect]
     Active Substance: CEFTRIAXONE\CEFTRIAXONE SODIUM
     Indication: Anti-infective therapy
     Dosage: 100 MG/KG PER DAY
     Route: 065
  6. CEFTRIAXONE [Suspect]
     Active Substance: CEFTRIAXONE\CEFTRIAXONE SODIUM
     Indication: Influenza
  7. CEFMETAZOLE [Concomitant]
     Active Substance: CEFMETAZOLE
     Indication: Product used for unknown indication
     Dosage: UNK
     Route: 065
  8. DEXAMETHASONE [Concomitant]
     Active Substance: DEXAMETHASONE
     Indication: Antiinflammatory therapy
     Dosage: UNK
     Route: 065
  9. DEXAMETHASONE [Concomitant]
     Active Substance: DEXAMETHASONE
     Indication: Hypoglycaemia
  10. METHYLPREDNISOLONE [Concomitant]
     Active Substance: METHYLPREDNISOLONE
     Indication: Product used for unknown indication
     Dosage: UNK
     Route: 065
  11. MIDAZOLAM [Concomitant]
     Active Substance: MIDAZOLAM
     Indication: Sedative therapy
     Dosage: UNK
     Route: 065
  12. MANNITOL [Concomitant]
     Active Substance: MANNITOL
     Indication: Dehydration
     Dosage: UNK
     Route: 065
  13. MANNITOL [Concomitant]
     Active Substance: MANNITOL
     Indication: Reduction of increased intracranial pressure
  14. PROTHROMBIN COMPLEX CONCENTRATE NOS [Concomitant]
     Active Substance: COAGULATION FACTOR IX HUMAN\COAGULATION FACTOR VII HUMAN\COAGULATION FACTOR X HUMAN\PROTHROMBIN
     Indication: Procoagulant therapy
     Dosage: UNK
     Route: 065

REACTIONS (2)
  - Disease progression [Fatal]
  - Drug ineffective [Unknown]
